FAERS Safety Report 8985332 (Version 2)
Quarter: 2013Q3

REPORT INFORMATION
  Report Type: Spontaneous
  Country: CN (occurrence: CN)
  Receive Date: 20121226
  Receipt Date: 20130925
  Transmission Date: 20140515
  Serious: Yes (Hospitalization, Other)
  Sender: FDA-Public Use
  Company Number: PHHY2012CN117782

PATIENT
  Age: 54 Year
  Sex: Female

DRUGS (2)
  1. GLEEVEC [Suspect]
     Indication: GASTROINTESTINAL STROMAL TUMOUR
     Dosage: 400 MG, QD
     Route: 048
  2. GLEEVEC [Suspect]
     Dosage: 400 MG, UNK
     Route: 048
     Dates: start: 20120227

REACTIONS (26)
  - Conjunctival hyperaemia [Recovered/Resolved]
  - Scleroderma [Unknown]
  - Skin hypertrophy [Unknown]
  - Metastases to liver [Unknown]
  - Malignant neoplasm progression [Unknown]
  - Anaphylactic shock [Unknown]
  - Pyrexia [Unknown]
  - Pallor [Unknown]
  - Respiratory rate increased [Unknown]
  - Heart sounds abnormal [Unknown]
  - Palpitations [Recovered/Resolved]
  - Flushing [Unknown]
  - Cyanosis [Unknown]
  - Blood pressure decreased [Unknown]
  - Mental disorder [Unknown]
  - Oedema [Not Recovered/Not Resolved]
  - Pruritus [Recovered/Resolved]
  - Rash [Unknown]
  - Nausea [Recovered/Resolved]
  - Chest discomfort [Recovered/Resolved]
  - Conjunctival oedema [Recovered/Resolved]
  - Dry skin [Unknown]
  - Skin exfoliation [Recovered/Resolved]
  - Left atrial dilatation [Unknown]
  - Hypersensitivity [Not Recovered/Not Resolved]
  - Abdominal pain [Unknown]
